FAERS Safety Report 4276630-7 (Version None)
Quarter: 2004Q1

REPORT INFORMATION
  Report Type: 
  Country: None (occurrence: None)
  Receive Date: 20040120
  Receipt Date: 20031211
  Transmission Date: 20041129
  Serious: Yes (Death)
  Sender: FDA-Public Use
  Company Number: 2004001133

PATIENT
  Age: 99 Year
  Sex: Female
  Weight: 58.9676 kg

DRUGS (8)
  1. BENADRYL [Suspect]
     Dosage: ORAL
     Route: 048
  2. AMLODIPINE BESYLATE [Suspect]
     Dosage: 5 MG QD, ORAL
     Route: 048
  3. NITROGLYCERIN [Suspect]
     Dosage: SUBLINGUAL
     Route: 060
  4. HYPNOTICS AND SEDATIVES [Suspect]
     Indication: SEDATION
     Dosage: ORAL
     Route: 048
  5. LOSARTAN POTASSIUM (LOSARTAN POTASSIUM) [Concomitant]
  6. ALPRAZOLAM [Concomitant]
  7. DIURETICS [Concomitant]
  8. ACETYLSALICYLIC ACID SRT [Concomitant]

REACTIONS (10)
  - APHASIA [None]
  - BEDRIDDEN [None]
  - BLOOD PRESSURE IMMEASURABLE [None]
  - DYSPHAGIA [None]
  - MOBILITY DECREASED [None]
  - MYOCARDIAL INFARCTION [None]
  - PNEUMONIA [None]
  - PULSE ABSENT [None]
  - SALIVARY HYPERSECRETION [None]
  - SENILE DEMENTIA [None]
